FAERS Safety Report 4945704-7 (Version None)
Quarter: 2006Q1

REPORT INFORMATION
  Report Type: 
  Country: None (occurrence: None)
  Receive Date: 20060117
  Receipt Date: 20050915
  Transmission Date: 20060701
  Serious: Yes (Hospitalization, Disabling)
  Sender: FDA-Public Use
  Company Number: A03200502937

PATIENT
  Age: 80 Year
  Sex: Male
  Weight: 86.637 kg

DRUGS (21)
  1. PLAVIX [Suspect]
     Dosage: 75 MG QD - ORAL
     Route: 048
  2. ACETYLSALICYLIC ACID SRT [Concomitant]
  3. VERAPAMIL [Concomitant]
  4. LISINOPRIL [Concomitant]
  5. SIMVASTATIN [Concomitant]
  6. FENOFIBRATE [Concomitant]
  7. RABEPRAZOLE SODIUM [Concomitant]
  8. FINASTERIDE [Concomitant]
  9. TAMSULOSIN HCL [Concomitant]
  10. CETIRIZINE HYDROCHLORIDE [Concomitant]
  11. MOMETASONE FUROATE [Concomitant]
  12. TRIAMCINOLONE ACETONIDE [Concomitant]
  13. CARBAMAZEPINE [Concomitant]
  14. IPRATROPIUM BROMIDE + ALBUTEROL [Concomitant]
  15. FLUTICASONE PROPIONATE+SALMETEROL [Concomitant]
  16. TIOTROPIUM BROMIDE [Concomitant]
  17. X-STRENGTH TYLENOL [Concomitant]
  18. CENTRUM SILVER [Concomitant]
  19. COLACE [Concomitant]
  20. HALEY'S MO [Concomitant]
  21. METAMUCIL [Concomitant]

REACTIONS (3)
  - CEREBROVASCULAR ACCIDENT [None]
  - CLOSTRIDIUM COLITIS [None]
  - PNEUMONIA STAPHYLOCOCCAL [None]
